FAERS Safety Report 7680371-3 (Version None)
Quarter: 2011Q3

REPORT INFORMATION
  Report Type: 
  Country: None (occurrence: None)
  Receive Date: 20110812
  Receipt Date: 20110722
  Transmission Date: 20111222
  Serious: Yes (Hospitalization)
  Sender: FDA-Public Use
  Company Number: NL-GLAXOSMITHKLINE-B0738924A

PATIENT
  Sex: Male

DRUGS (3)
  1. PAZOPANIB [Suspect]
     Indication: NEOPLASM MALIGNANT
     Route: 048
     Dates: start: 20110706
  2. ASCAL [Concomitant]
     Indication: TRANSIENT ISCHAEMIC ATTACK
     Dosage: 80MG PER DAY
     Route: 048
     Dates: start: 19950101
  3. DOCETAXEL [Suspect]
     Indication: NEOPLASM MALIGNANT
     Route: 042
     Dates: start: 20110705

REACTIONS (1)
  - MALAISE [None]
